FAERS Safety Report 8365795-3 (Version None)
Quarter: 2012Q2

REPORT INFORMATION
  Report Type: 
  Country: None (occurrence: None)
  Receive Date: 20120517
  Receipt Date: 20120507
  Transmission Date: 20120825
  Serious: Yes (Other)
  Sender: FDA-Public Use
  Company Number: AR-AMGEN-ARGSP2012029434

PATIENT
  Sex: Female

DRUGS (4)
  1. LEFLUNOMIDE [Suspect]
     Dosage: UNK
  2. CORTICOSTEROIDS [Suspect]
     Dosage: UNK
  3. ENBREL [Suspect]
     Indication: RHEUMATOID ARTHRITIS
     Dosage: 25 MG, EVERY 15 DAYS
     Dates: start: 20050411, end: 20101101
  4. METHOTREXATE [Suspect]
     Dosage: UNK

REACTIONS (3)
  - GALLBLADDER OPERATION [None]
  - HEPATIC ENZYME INCREASED [None]
  - CATARACT [None]
